FAERS Safety Report 12865653 (Version 1)
Quarter: 2016Q4

REPORT INFORMATION
  Report Type: Spontaneous
  Country: US (occurrence: US)
  Receive Date: 20161020
  Receipt Date: 20161020
  Transmission Date: 20170207
  Serious: No
  Sender: FDA-Public Use
  Company Number: None

PATIENT

DRUGS (2)
  1. EPINEPHRINE 1MG/10ML BOXES [Suspect]
     Active Substance: EPINEPHRINE
  2. SODIUM BI-CARB 4.2% [Suspect]
     Active Substance: SODIUM BICARBONATE

REACTIONS (1)
  - Product packaging confusion [None]
